FAERS Safety Report 6338047-0 (Version None)
Quarter: 2009Q3

REPORT INFORMATION
  Report Type: 
  Country: None (occurrence: None)
  Receive Date: 20090902
  Receipt Date: 20090821
  Transmission Date: 20100115
  Serious: Yes (Other)
  Sender: FDA-Public Use
  Company Number: FR-PFIZER INC-2009259913

PATIENT
  Age: 36 Year

DRUGS (5)
  1. VERAPAMIL HCL [Suspect]
  2. FLUTICASONE [Interacting]
     Dosage: 1500 UG, DAILY
  3. SERTRALINE [Concomitant]
  4. OMEPRAZOLE [Concomitant]
  5. ZOLPIDEM [Concomitant]

REACTIONS (2)
  - CUSHING'S SYNDROME [None]
  - DRUG INTERACTION [None]
